FAERS Safety Report 16748944 (Version 1)
Quarter: 2019Q3

REPORT INFORMATION
  Report Type: Spontaneous
  Country: RU (occurrence: RU)
  Receive Date: 20190828
  Receipt Date: 20190828
  Transmission Date: 20191005
  Serious: Yes (Other)
  Sender: FDA-Public Use
  Company Number: RU-ROCHE-2384150

PATIENT
  Age: 75 Year
  Sex: Female

DRUGS (2)
  1. LEUKERAN [Suspect]
     Active Substance: CHLORAMBUCIL
     Indication: CRYOGLOBULINAEMIA
     Route: 065
  2. GAZYVA [Suspect]
     Active Substance: OBINUTUZUMAB
     Indication: CRYOGLOBULINAEMIA
     Route: 042

REACTIONS (5)
  - Cryoglobulinaemia [Unknown]
  - Off label use [Unknown]
  - Product administration error [Unknown]
  - Leukopenia [Unknown]
  - Intentional product use issue [Unknown]
